FAERS Safety Report 7045761-0 (Version None)
Quarter: 2010Q4

REPORT INFORMATION
  Report Type: 
  Country: None (occurrence: None)
  Receive Date: 20101014
  Receipt Date: 20101007
  Transmission Date: 20110411
  Serious: No
  Sender: FDA-Public Use
  Company Number: US-B.I. PHARMACEUTICALS,INC./RIDGEFIELD-2010-BP-11444BP

PATIENT
  Sex: Female

DRUGS (20)
  1. SPIRIVA [Suspect]
     Indication: BRONCHITIS CHRONIC
     Dosage: 18 MCG
     Route: 055
     Dates: start: 20100701
  2. SPIRIVA [Suspect]
     Indication: EMPHYSEMA
  3. FOSAMAX [Concomitant]
     Indication: OSTEOPOROSIS
  4. PREVACID [Concomitant]
     Indication: GASTROOESOPHAGEAL REFLUX DISEASE
  5. TOPROL-XL [Concomitant]
     Indication: HYPERTENSION
  6. DIOVAN [Concomitant]
     Indication: HYPERTENSION
  7. LEVOTHYROXINE [Concomitant]
     Indication: HYPOTHYROIDISM
  8. LOVASTATIN [Concomitant]
     Indication: BLOOD CHOLESTEROL INCREASED
  9. FLOVENT [Concomitant]
     Indication: BRONCHITIS CHRONIC
  10. FLOVENT [Concomitant]
     Indication: EMPHYSEMA
  11. OXYGEN [Concomitant]
     Indication: BRONCHITIS CHRONIC
  12. OXYGEN [Concomitant]
     Indication: EMPHYSEMA
  13. VENTOLIN [Concomitant]
     Indication: BRONCHITIS CHRONIC
  14. VENTOLIN [Concomitant]
     Indication: EMPHYSEMA
  15. SINGULAIR [Concomitant]
     Indication: BRONCHITIS CHRONIC
  16. SINGULAIR [Concomitant]
     Indication: EMPHYSEMA
  17. ASPIRIN [Concomitant]
     Indication: PROPHYLAXIS
  18. SUSTAIN TEARS [Concomitant]
     Indication: DRY EYE
  19. BENEFIBER [Concomitant]
     Indication: PROPHYLAXIS
  20. GLUCOSAMINE [Concomitant]
     Indication: PROPHYLAXIS

REACTIONS (1)
  - DYSPNOEA [None]
